FAERS Safety Report 9901736 (Version 1)
Quarter: 2014Q1

REPORT INFORMATION
  Report Type: Spontaneous
  Country: US (occurrence: US)
  Receive Date: 20140217
  Receipt Date: 20140217
  Transmission Date: 20141002
  Serious: Yes (Other)
  Sender: FDA-Public Use
  Company Number: PHEH2014US002696

PATIENT
  Sex: Male

DRUGS (7)
  1. SANDOSTATIN LAR DEPOT [Suspect]
     Indication: NEOPLASM MALIGNANT
     Dosage: UNK UKN, ONCE A MONTH
     Route: 065
     Dates: start: 2006
  2. SANDOSTATIN LAR DEPOT [Suspect]
     Indication: OFF LABEL USE
  3. CITRACAL [Concomitant]
     Dosage: UNK UKN, UNK
  4. UROCIT K [Concomitant]
     Dosage: UNK UKN, UNK
  5. ALLOPURINOL [Concomitant]
     Dosage: UNK UKN, UNK
  6. TYLENOL [Concomitant]
     Dosage: UNK UKN, UNK
  7. TRAMADOL [Concomitant]
     Dosage: UNK UKN, UNK

REACTIONS (6)
  - Intestinal obstruction [Unknown]
  - Nephrolithiasis [Unknown]
  - Pain [Unknown]
  - Back pain [Unknown]
  - Diarrhoea [Unknown]
  - Headache [Unknown]
